FAERS Safety Report 9735847 (Version 1)
Quarter: 2013Q4

REPORT INFORMATION
  Report Type: Spontaneous
  Country: US (occurrence: None)
  Receive Date: 20131204
  Receipt Date: 20131204
  Transmission Date: 20140711
  Serious: Yes (Other)
  Sender: FDA-Public Use
  Company Number: 2036535

PATIENT
  Age: 63 Year
  Sex: Female
  Weight: 56.36 kg

DRUGS (2)
  1. DEMEROL [Suspect]
     Indication: SEDATION
     Dosage: 50 MG MILLIGRAM(S), UNKNOWN, INTRAVENOUS
     Route: 042
     Dates: start: 20131118
  2. VERSED [Suspect]
     Indication: PRODUCT USED FOR UNKNOWN INDICATION
     Dosage: 4 MG MILLIGRAM(S), UNKNOWN, UNKNOWN
     Dates: start: 20131118

REACTIONS (4)
  - Oxygen saturation decreased [None]
  - Unresponsive to stimuli [None]
  - Hypotension [None]
  - Bradycardia [None]
